FAERS Safety Report 8056826-9 (Version None)
Quarter: 2012Q1

REPORT INFORMATION
  Report Type: 
  Country: None (occurrence: None)
  Receive Date: 20120119
  Receipt Date: 20120119
  Transmission Date: 20120608
  Serious: Yes (Other)
  Sender: FDA-Public Use
  Company Number: US-BAYER-2012-006027

PATIENT
  Sex: Female

DRUGS (2)
  1. BETASERON [Suspect]
     Indication: PRODUCT USED FOR UNKNOWN INDICATION
  2. ANTIDEPRESSANTS [Concomitant]
     Indication: DEPRESSION

REACTIONS (4)
  - PANCREATITIS [None]
  - INJECTION SITE REACTION [None]
  - INFLUENZA LIKE ILLNESS [None]
  - CLOSTRIDIAL INFECTION [None]
